FAERS Safety Report 4607700-9 (Version None)
Quarter: 2005Q1

REPORT INFORMATION
  Report Type: 
  Country: None (occurrence: None)
  Receive Date: 20050309
  Receipt Date: 20050217
  Transmission Date: 20050727
  Serious: Yes (Hospitalization, Other)
  Sender: FDA-Public Use
  Company Number: DE_050215278

PATIENT
  Age: 66 Year
  Sex: Female

DRUGS (6)
  1. FORTEO [Suspect]
     Indication: OSTEOPOROSIS
     Dosage: 20 UG/1 DAY
     Dates: start: 20041102, end: 20050215
  2. LANTAREL (METHOTHREXATE SODIUM) [Concomitant]
  3. PREDNISOLONE (PREDNISOLONE ACETATE) [Concomitant]
  4. PANTOPRAZOLE [Concomitant]
  5. FENTANYL [Concomitant]
  6. SANDOCAL (CALCIUM GLUBIONATE) [Concomitant]

REACTIONS (1)
  - LEUKAEMIA [None]
